FAERS Safety Report 4970365-0 (Version None)
Quarter: 2006Q2

REPORT INFORMATION
  Report Type: 
  Country: None (occurrence: None)
  Receive Date: 20060406
  Receipt Date: 20060328
  Transmission Date: 20061013
  Serious: Yes (Disabling, Other)
  Sender: FDA-Public Use
  Company Number: 200610352BWH

PATIENT
  Age: 31 Year
  Sex: Male

DRUGS (1)
  1. LEVITRA [Suspect]
     Dosage: ONCE, ORAL
     Route: 048
     Dates: start: 20050701

REACTIONS (3)
  - DYSPHONIA [None]
  - HAEMORRHAGE [None]
  - VOCAL CORD DISORDER [None]
